FAERS Safety Report 8383849 (Version 2)
Quarter: 2014Q1

REPORT INFORMATION
  Report Type: Report from Study
  Country: GB (occurrence: GB)
  Receive Date: 20120201
  Receipt Date: 20140115
  Transmission Date: 20141002
  Serious: Yes (Death, Hospitalization)
  Sender: FDA-Public Use
  Company Number: GB-ROCHE-1033903

PATIENT
  Age: 72 Year
  Sex: Female

DRUGS (2)
  1. RITUXIMAB [Suspect]
     Indication: RHEUMATOID ARTHRITIS
     Route: 065
     Dates: start: 20061219
  2. METHOTREXATE [Concomitant]

REACTIONS (3)
  - Diverticulitis [Fatal]
  - Gastrointestinal haemorrhage [Fatal]
  - Sepsis [Fatal]
